FAERS Safety Report 10070900 (Version 2)
Quarter: 2014Q4

REPORT INFORMATION
  Report Type: Spontaneous
  Country: US (occurrence: None)
  Receive Date: 20140408
  Receipt Date: 20141016
  Transmission Date: 20150528
  Serious: Yes (Life-Threatening, Hospitalization)
  Sender: FDA-Public Use
  Company Number: 2014-US-003697

PATIENT
  Age: 35 Year
  Sex: Female

DRUGS (1)
  1. XYREM [Suspect]
     Active Substance: SODIUM OXYBATE
     Indication: FIBROMYALGIA
     Route: 048
     Dates: start: 201202

REACTIONS (6)
  - Surgery [None]
  - Toxic shock syndrome streptococcal [None]
  - Off label use [None]
  - Sepsis [None]
  - Post procedural complication [None]
  - Malaise [None]

NARRATIVE: CASE EVENT DATE: 201403
